FAERS Safety Report 7154252-8 (Version None)
Quarter: 2010Q4

REPORT INFORMATION
  Report Type: 
  Country: None (occurrence: None)
  Receive Date: 20101213
  Receipt Date: 20101202
  Transmission Date: 20110411
  Serious: Yes (Life-Threatening, Hospitalization)
  Sender: FDA-Public Use
  Company Number: JP-CELGENEUS-087-21880-10111552

PATIENT
  Sex: Male

DRUGS (11)
  1. REVLIMID [Suspect]
     Indication: MULTIPLE MYELOMA
     Route: 048
     Dates: start: 20100723, end: 20100802
  2. REVLIMID [Suspect]
     Route: 048
     Dates: start: 20100803, end: 20100803
  3. REVLIMID [Suspect]
     Route: 048
     Dates: start: 20100819, end: 20100829
  4. LENADEX [Suspect]
     Indication: MULTIPLE MYELOMA
     Route: 048
     Dates: start: 20100724, end: 20100731
  5. GRAN [Concomitant]
     Indication: MULTIPLE MYELOMA
     Route: 058
     Dates: start: 20100729, end: 20100812
  6. ROCEPHIN [Concomitant]
     Route: 051
     Dates: start: 20100728, end: 20100729
  7. DORIPENEM HYDRATE [Concomitant]
     Route: 051
     Dates: start: 20100729, end: 20100818
  8. DEXAMETHASONE [Concomitant]
     Indication: MULTIPLE MYELOMA
     Route: 041
     Dates: start: 20100821, end: 20100822
  9. DEXAMETHASONE [Concomitant]
     Route: 041
     Dates: start: 20100828
  10. FINIBAX [Concomitant]
     Route: 041
     Dates: start: 20100819, end: 20100827
  11. VANCOMYCIN [Concomitant]
     Indication: INFECTION
     Route: 041
     Dates: start: 20100819, end: 20100901

REACTIONS (7)
  - HAEMOGLOBIN DECREASED [None]
  - INFECTION [None]
  - JAUNDICE [None]
  - NEUROPATHY PERIPHERAL [None]
  - NEUTROPENIA [None]
  - NEUTROPHIL COUNT DECREASED [None]
  - PLATELET COUNT DECREASED [None]
